FAERS Safety Report 5207757-0 (Version None)
Quarter: 2006Q4

REPORT INFORMATION
  Report Type: 
  Country: None (occurrence: None)
  Receive Date: 20061030
  Receipt Date: 20060707
  Transmission Date: 20070319
  Serious: No
  Sender: FDA-Public Use
  Company Number: 250793

PATIENT
  Age: 17 Year
  Sex: Female
  Weight: 54.9 kg

DRUGS (1)
  1. LEVEMIR [Suspect]
     Indication: DIABETES MELLITUS INSULIN-DEPENDENT
     Dosage: 24 IU, QD, SUBCUTANEOUS
     Route: 058
     Dates: start: 20060206

REACTIONS (2)
  - INJECTION SITE BRUISING [None]
  - INJECTION SITE ERYTHEMA [None]
